FAERS Safety Report 20526869 (Version 2)
Quarter: 2022Q1

REPORT INFORMATION
  Report Type: Spontaneous
  Country: US (occurrence: US)
  Receive Date: 20220228
  Receipt Date: 20220311
  Transmission Date: 20220424
  Serious: Yes (Hospitalization)
  Sender: FDA-Public Use
  Company Number: US-TEVA-2022-US-2011735

PATIENT
  Age: 61 Year
  Sex: Female

DRUGS (2)
  1. METHOTREXATE [Suspect]
     Active Substance: METHOTREXATE
     Indication: Psoriatic arthropathy
     Dosage: TREATED SINCE 3 YERAS
     Route: 065
  2. AMOXICILLIN\CLAVULANIC ACID [Suspect]
     Active Substance: AMOXICILLIN\CLAVULANIC ACID
     Indication: Tenosynovitis
     Dosage: DOSE: 875MG-125MG, TWICE A DAY
     Route: 048

REACTIONS (4)
  - Infective tenosynovitis [Recovering/Resolving]
  - Campylobacter infection [Recovering/Resolving]
  - Joint range of motion decreased [Recovered/Resolved]
  - Drug ineffective [Unknown]
